FAERS Safety Report 14450481 (Version 3)
Quarter: 2018Q2

REPORT INFORMATION
  Report Type: Spontaneous
  Country: US (occurrence: US)
  Receive Date: 20180129
  Receipt Date: 20180417
  Transmission Date: 20180711
  Serious: Yes (Other)
  Sender: FDA-Public Use
  Company Number: US-INCYTE CORPORATION-2018IN000604

PATIENT

DRUGS (3)
  1. JAKAFI [Suspect]
     Active Substance: RUXOLITINIB
     Indication: MYELOFIBROSIS
     Dosage: 5 MG, UNK
     Route: 048
     Dates: start: 20171222
  2. JAKAFI [Suspect]
     Active Substance: RUXOLITINIB
     Dosage: 5-10 MG, BID
     Route: 048
  3. JAKAFI [Suspect]
     Active Substance: RUXOLITINIB
     Indication: POLYCYTHAEMIA VERA
     Dosage: 10 MG, BID
     Route: 048

REACTIONS (9)
  - Pyrexia [Recovering/Resolving]
  - Chills [Unknown]
  - Dizziness [Unknown]
  - Delirium [Recovering/Resolving]
  - Parkinson^s disease [Recovering/Resolving]
  - Drug dose omission [Unknown]
  - Chest discomfort [Not Recovered/Not Resolved]
  - Arthralgia [Unknown]
  - Dyspnoea [Not Recovered/Not Resolved]

NARRATIVE: CASE EVENT DATE: 20180122
